FAERS Safety Report 13908627 (Version 1)
Quarter: 2017Q3

REPORT INFORMATION
  Report Type: Spontaneous
  Country: US (occurrence: US)
  Receive Date: 20170827
  Receipt Date: 20170827
  Transmission Date: 20171127
  Serious: Yes (Hospitalization)
  Sender: FDA-Public Use
  Company Number: US-CELGENEUS-USA-20170807386

PATIENT
  Sex: Female
  Weight: 55.39 kg

DRUGS (1)
  1. POMALYST [Suspect]
     Active Substance: POMALIDOMIDE
     Indication: THALASSAEMIA BETA
     Dosage: 2 MILLIGRAM
     Route: 048
     Dates: start: 20160210

REACTIONS (1)
  - Haemoglobin decreased [Unknown]
